FAERS Safety Report 11119281 (Version 1)
Quarter: 2015Q2

REPORT INFORMATION
  Report Type: Spontaneous
  Country: US (occurrence: US)
  Receive Date: 20150518
  Receipt Date: 20150518
  Transmission Date: 20150821
  Serious: No
  Sender: FDA-Public Use
  Company Number: US-PFIZER INC-2015166215

PATIENT
  Age: 86 Year
  Sex: Female
  Weight: 74 kg

DRUGS (1)
  1. CELECOXIB. [Suspect]
     Active Substance: CELECOXIB
     Indication: ARTHRITIS
     Dosage: 7.5 MG, 2X/DAY
     Dates: end: 20150513

REACTIONS (1)
  - Drug ineffective [Unknown]
